FAERS Safety Report 5592318-4 (Version None)
Quarter: 2008Q1

REPORT INFORMATION
  Report Type: 
  Country: None (occurrence: None)
  Receive Date: 20080111
  Receipt Date: 20071224
  Transmission Date: 20080703
  Serious: Yes (Life-Threatening, Hospitalization)
  Sender: FDA-Public Use
  Company Number: 6040049

PATIENT
  Age: 75 Year
  Sex: Male

DRUGS (5)
  1. DETENSEIL [Suspect]
     Indication: DRUG USE FOR UNKNOWN INDICATION
     Dosage: 0,25 DOSAGE FORMS (0,25 DOSAGE FORMS,1 IN 1 D)
     Route: 048
  2. COKENZEN                 (HYDROCHLOROTHIAZIDE, CANDESARTAN CILEXETIL) [Suspect]
     Dosage: 1 DOSAGE FORMS (1 DOSAGE FORMS,1 D)
     Route: 048
  3. CORDARONE [Suspect]
     Indication: TACHYCARDIA
     Dosage: 200 MG (200 MG,1 D)
     Route: 048
  4. LASIX [Suspect]
     Indication: DRUG USE FOR UNKNOWN INDICATION
     Dosage: 40 MG
     Route: 048
  5. LIPANTYL           (FENOFIBRATE) [Suspect]
     Indication: DRUG USE FOR UNKNOWN INDICATION
     Route: 048

REACTIONS (24)
  - ASTHENIA [None]
  - BLOOD PRESSURE DIASTOLIC DECREASED [None]
  - BODY TEMPERATURE DECREASED [None]
  - BRADYCARDIA [None]
  - CARDIAC FAILURE [None]
  - CIRCULATORY COLLAPSE [None]
  - COAGULOPATHY [None]
  - CONDUCTION DISORDER [None]
  - CYTOLYTIC HEPATITIS [None]
  - DIALYSIS [None]
  - DYSPHAGIA [None]
  - GASTRIC ULCER [None]
  - HAEMATURIA [None]
  - HEART RATE DECREASED [None]
  - HYPERKALAEMIA [None]
  - LACUNAR INFARCTION [None]
  - METABOLIC ACIDOSIS [None]
  - NOSOPHOBIA [None]
  - OEDEMA [None]
  - PSYCHOMOTOR SKILLS IMPAIRED [None]
  - PULSE PRESSURE DECREASED [None]
  - RENAL FAILURE [None]
  - RESPIRATORY ARREST [None]
  - TACHYCARDIA [None]
